FAERS Safety Report 8847185 (Version 1)
Quarter: 2012Q4

REPORT INFORMATION
  Report Type: 
  Country: BR (occurrence: BR)
  Receive Date: 20121018
  Receipt Date: 20121018
  Transmission Date: 20130627
  Serious: Yes (Other)
  Sender: FDA-Public Use
  Company Number: BR-ACCORD-014971

PATIENT
  Age: 37 Year
  Sex: Male

DRUGS (3)
  1. PREDNISONE [Suspect]
     Indication: IMMUNOSUPPRESSION
  2. TACROLIMUS [Suspect]
     Indication: IMMUNOSUPPRESSION
  3. MYCOPHENOLATE SODIUM [Suspect]
     Indication: IMMUNOSUPPRESSION

REACTIONS (2)
  - Chronic granulomatous disease [Recovered/Resolved]
  - Burkholderia cepacia complex infection [Recovered/Resolved]
